FAERS Safety Report 6426677-7 (Version None)
Quarter: 2009Q4

REPORT INFORMATION
  Report Type: 
  Country: None (occurrence: None)
  Receive Date: 20091104
  Receipt Date: 20091029
  Transmission Date: 20100525
  Serious: Yes (Death)
  Sender: FDA-Public Use
  Company Number: JP-BAYER-200913269BYL

PATIENT
  Age: 65 Year
  Sex: Female
  Weight: 38 kg

DRUGS (5)
  1. NEXAVAR [Suspect]
     Indication: HEPATIC NEOPLASM MALIGNANT
     Dosage: TOTAL DAILY DOSE: 800 MG  UNIT DOSE: 200 MG
     Route: 048
     Dates: start: 20090826, end: 20090903
  2. AMOBAN [Suspect]
     Indication: DRUG USE FOR UNKNOWN INDICATION
     Route: 048
     Dates: start: 20090228, end: 20090901
  3. MAGMITT [Concomitant]
     Dosage: TOTAL DAILY DOSE: 990 MG  UNIT DOSE: 330 MG
     Route: 048
     Dates: start: 20090217, end: 20090903
  4. LIVACT [Concomitant]
     Dosage: TOTAL DAILY DOSE: 12.45 G  UNIT DOSE: 4.15 G
     Route: 048
     Dates: start: 20090429, end: 20090903
  5. RINDERON [Concomitant]
     Dosage: TOTAL DAILY DOSE: 0.5 MG  UNIT DOSE: 0.5 MG
     Route: 048
     Dates: start: 20090625, end: 20090903

REACTIONS (1)
  - COMA HEPATIC [None]
